FAERS Safety Report 6436224-1 (Version None)
Quarter: 2009Q4

REPORT INFORMATION
  Report Type: 
  Country: None (occurrence: None)
  Receive Date: 20091111
  Receipt Date: 20091105
  Transmission Date: 20100525
  Serious: Yes (Hospitalization)
  Sender: FDA-Public Use
  Company Number: CL-ROCHE-667407

PATIENT
  Sex: Male

DRUGS (4)
  1. INTERFERON ALFA [Suspect]
     Indication: RENAL CELL CARCINOMA
     Dosage: DOSE: 9 MU
     Route: 058
     Dates: start: 20090915, end: 20091103
  2. BEVACIZUMAB [Suspect]
     Indication: RENAL CELL CARCINOMA
     Route: 042
     Dates: start: 20090915, end: 20091103
  3. LOPERAMIDE [Concomitant]
     Route: 048
     Dates: start: 20091102
  4. ACETAMINOPHEN [Concomitant]
     Dates: start: 20090915

REACTIONS (1)
  - DEHYDRATION [None]
